FAERS Safety Report 6202814-4 (Version None)
Quarter: 2009Q2

REPORT INFORMATION
  Report Type: 
  Country: None (occurrence: None)
  Receive Date: 20090519
  Receipt Date: 20090503
  Transmission Date: 20091009
  Serious: Yes (Life-Threatening)
  Sender: FDA-Public Use
  Company Number: 8045354

PATIENT
  Age: 25 Year
  Sex: Male

DRUGS (1)
  1. XYZAL [Suspect]
     Indication: OTITIS MEDIA
     Dosage: 5 MG /D PO
     Route: 048
     Dates: start: 20090417, end: 20090418

REACTIONS (4)
  - ALLERGY TEST POSITIVE [None]
  - OCULAR HYPERAEMIA [None]
  - OROPHARYNGEAL SWELLING [None]
  - SWELLING FACE [None]
